FAERS Safety Report 7712027-2 (Version None)
Quarter: 2011Q3

REPORT INFORMATION
  Report Type: 
  Country: None (occurrence: None)
  Receive Date: 20110826
  Receipt Date: 20110815
  Transmission Date: 20111222
  Serious: No
  Sender: FDA-Public Use
  Company Number: US-TYCO HEALTHCARE/MALLINCKRODT-T201101593

PATIENT
  Age: 56 Year
  Sex: Male

DRUGS (6)
  1. EXALGO [Suspect]
     Indication: PAIN
     Dosage: 8 MG QD
     Route: 048
     Dates: start: 20110601, end: 20110801
  2. STEROID CREAM [Concomitant]
     Indication: PRURITUS
     Dosage: UNK
     Route: 061
  3. FENTANYL [Concomitant]
     Indication: BREAKTHROUGH PAIN
     Dosage: UNK
     Route: 062
  4. SOMA [Concomitant]
     Dosage: UNK
  5. GABAPENTIN [Concomitant]
     Dosage: UNK
  6. TYLENOL W/ CODEINE [Concomitant]
     Dosage: UNK

REACTIONS (4)
  - PRODUCT TAMPERING [None]
  - DRUG INEFFECTIVE [None]
  - INTENTIONAL DRUG MISUSE [None]
  - DRUG PRESCRIBING ERROR [None]
